FAERS Safety Report 20415978 (Version 5)
Quarter: 2022Q3

REPORT INFORMATION
  Report Type: Spontaneous
  Country: IT (occurrence: IT)
  Receive Date: 20220202
  Receipt Date: 20220908
  Transmission Date: 20221026
  Serious: Yes (Life-Threatening, Hospitalization)
  Sender: FDA-Public Use
  Company Number: IT-JNJFOC-20220144894

PATIENT
  Age: 76 Year
  Sex: Male
  Weight: 79 kg

DRUGS (24)
  1. FENTANYL [Suspect]
     Active Substance: FENTANYL
     Indication: Sciatica
     Route: 062
     Dates: start: 20211026, end: 20211111
  2. FENTANYL [Suspect]
     Active Substance: FENTANYL
     Indication: Pain
     Route: 062
     Dates: start: 20211112, end: 20211117
  3. FENTANYL [Suspect]
     Active Substance: FENTANYL
     Route: 062
     Dates: start: 20211118, end: 20211219
  4. ACASUNLIMAB [Suspect]
     Active Substance: ACASUNLIMAB
     Indication: Non-small cell lung cancer
     Dosage: ON DAY 1 OF EVERY 3-WEEK CYCLE (1Q3W).
     Dates: start: 20211029, end: 20211119
  5. ASPIRIN [Concomitant]
     Active Substance: ASPIRIN
     Dates: start: 20191121
  6. FOLIC ACID [Concomitant]
     Active Substance: FOLIC ACID
     Dates: start: 20191125
  7. LASTAN [Concomitant]
     Dates: start: 2016, end: 20211201
  8. PREDNISONE [Concomitant]
     Active Substance: PREDNISONE
     Dates: start: 20211202
  9. FAMOTIDINE [Concomitant]
     Active Substance: FAMOTIDINE
     Dates: start: 20200828
  10. LYRICA [Concomitant]
     Active Substance: PREGABALIN
     Dates: start: 20210916
  11. ACETAMINOPHEN [Concomitant]
     Active Substance: ACETAMINOPHEN
     Dates: start: 20210427, end: 20211202
  12. BISOPROLOL FUMARATE [Concomitant]
     Active Substance: BISOPROLOL FUMARATE
     Dates: start: 20211026
  13. BISOPROLOL FUMARATE [Concomitant]
     Active Substance: BISOPROLOL FUMARATE
     Dates: start: 20211007
  14. CHOLECALCIFEROL [Concomitant]
     Active Substance: CHOLECALCIFEROL
     Dates: start: 20211007
  15. MORPHINE SULFATE [Concomitant]
     Active Substance: MORPHINE SULFATE
     Dates: start: 20211216, end: 20211218
  16. TALOFEN [Concomitant]
     Active Substance: PROMAZINE HYDROCHLORIDE
     Route: 065
     Dates: start: 20211221, end: 20211222
  17. METOPROLOL [Concomitant]
     Active Substance: METOPROLOL
     Dates: start: 20211222, end: 20211222
  18. METOPROLOL TARTRATE [Concomitant]
     Active Substance: METOPROLOL TARTRATE
     Dates: start: 20211223, end: 20211225
  19. OXYCODONE [Concomitant]
     Active Substance: OXYCODONE
     Dates: start: 20211219, end: 20211220
  20. MORPHINE [Concomitant]
     Active Substance: MORPHINE
     Dates: start: 20211219
  21. PANTOPRAZOLE [Concomitant]
     Active Substance: PANTOPRAZOLE
     Dates: start: 20211219
  22. MIDAZOLAM [Concomitant]
     Active Substance: MIDAZOLAM
     Dates: start: 20211223
  23. METHYLPREDNISOLONE [Concomitant]
     Active Substance: METHYLPREDNISOLONE
     Dates: start: 20211223, end: 20211223
  24. ENOXAPARIN SODIUM [Concomitant]
     Active Substance: ENOXAPARIN SODIUM
     Dates: start: 20211221, end: 20211224

REACTIONS (2)
  - Pneumothorax [Recovered/Resolved]
  - Toxicity to various agents [Not Recovered/Not Resolved]

NARRATIVE: CASE EVENT DATE: 20211202
